FAERS Safety Report 16449028 (Version 2)
Quarter: 2019Q2

REPORT INFORMATION
  Report Type: Spontaneous
  Country: MY (occurrence: MY)
  Receive Date: 20190619
  Receipt Date: 20190624
  Transmission Date: 20190711
  Serious: Yes (Death)
  Sender: FDA-Public Use
  Company Number: MY-B.I. PHARMACEUTICALS,INC./RIDGEFIELD-2019-BI-027042

PATIENT
  Age: 70 Year
  Sex: Male

DRUGS (1)
  1. PRAXBIND [Suspect]
     Active Substance: IDARUCIZUMAB
     Indication: PROCOAGULANT THERAPY
     Route: 065
     Dates: start: 20190613

REACTIONS (1)
  - Hypovolaemic shock [Fatal]

NARRATIVE: CASE EVENT DATE: 20190617
